FAERS Safety Report 23784697 (Version 1)
Quarter: 2024Q2

REPORT INFORMATION
  Report Type: Spontaneous
  Country: US (occurrence: None)
  Receive Date: 20240425
  Receipt Date: 20240425
  Transmission Date: 20240716
  Serious: No
  Sender: FDA-Public Use
  Company Number: None

PATIENT
  Age: 61 Year
  Sex: Male

DRUGS (1)
  1. EMPAGLIFLOZIN [Suspect]
     Active Substance: EMPAGLIFLOZIN
     Indication: Diabetes mellitus
     Dates: start: 20220524, end: 20230412

REACTIONS (6)
  - Urinary tract infection [None]
  - Sepsis [None]
  - Pyrexia [None]
  - Hypotension [None]
  - Tachycardia [None]
  - Pyelonephritis [None]

NARRATIVE: CASE EVENT DATE: 20230402
